FAERS Safety Report 20666237 (Version 2)
Quarter: 2022Q2

REPORT INFORMATION
  Report Type: Spontaneous
  Country: US (occurrence: US)
  Receive Date: 20220403
  Receipt Date: 20220504
  Transmission Date: 20220720
  Serious: No
  Sender: FDA-Public Use
  Company Number: US-SANOFI-01032110

PATIENT
  Age: 83 Year
  Sex: Female

DRUGS (1)
  1. LANTUS SOLOSTAR [Suspect]
     Active Substance: INSULIN GLARGINE
     Indication: Type 2 diabetes mellitus
     Dosage: 26 IU, QD

REACTIONS (5)
  - Migraine [Unknown]
  - Spinal meningeal cyst [Unknown]
  - Injection site haemorrhage [Unknown]
  - Injection site pain [Unknown]
  - Glycosylated haemoglobin increased [Unknown]
